FAERS Safety Report 9299116 (Version 1)
Quarter: 2013Q2

REPORT INFORMATION
  Report Type: Spontaneous
  Country: US (occurrence: US)
  Receive Date: 20130520
  Receipt Date: 20130520
  Transmission Date: 20140414
  Serious: Yes (Other)
  Sender: FDA-Public Use
  Company Number: US-MYLANLABS-2013S1010009

PATIENT
  Age: 49 Year
  Sex: Female

DRUGS (6)
  1. VANCOMYCIN [Suspect]
     Route: 065
  2. CEFAZOLIN [Concomitant]
     Route: 065
  3. CLAVULANIC ACID W/TICARCILLIN [Concomitant]
     Route: 065
  4. FLUOXETINE [Concomitant]
     Indication: DEPRESSION
     Route: 065
  5. HYDROCODONE [Concomitant]
     Indication: PAIN
     Dosage: AS NEEDED
     Route: 065
  6. FLUCONAZOLE [Concomitant]
     Indication: ORAL CANDIDIASIS
     Route: 065

REACTIONS (1)
  - Linear IgA disease [Recovered/Resolved]
